FAERS Safety Report 9167368 (Version 1)
Quarter: 2013Q1

REPORT INFORMATION
  Report Type: Spontaneous
  Country: US (occurrence: None)
  Receive Date: 20130304
  Receipt Date: 20130304
  Transmission Date: 20140127
  Serious: Yes (Life-Threatening, Hospitalization)
  Sender: FDA-Public Use
  Company Number: 2013P1002537

PATIENT
  Age: 31 Year
  Sex: Female

DRUGS (6)
  1. DIAZEPAM [Suspect]
     Indication: INSOMNIA
  2. HYDROXYCARBAMIDE [Suspect]
     Indication: THROMBOCYTOPENIA
  3. ALCOHOL [Suspect]
     Indication: ANXIETY
  4. ALCOHOL [Suspect]
     Indication: SLEEP DISORDER
  5. PAROXETINE [Suspect]
  6. OMEPRAZOLE [Concomitant]

REACTIONS (4)
  - Suicidal ideation [None]
  - Restlessness [None]
  - Depressed mood [None]
  - Overdose [None]
